FAERS Safety Report 25552898 (Version 1)
Quarter: 2025Q3

REPORT INFORMATION
  Report Type: Spontaneous
  Country: EU (occurrence: EU)
  Receive Date: 20250715
  Receipt Date: 20250715
  Transmission Date: 20251021
  Serious: Yes (Congenital Anomaly, Other)
  Sender: CELLTRION
  Company Number: EU-EMB-M202305696-1

PATIENT

DRUGS (4)
  1. INFLIXIMAB [Suspect]
     Active Substance: INFLIXIMAB
     Indication: Colitis ulcerative
     Dosage: 1X/4 WK (ADDITIONAL INFORMATION ON DRUG (FREE TEXT): SINCE 2019)
     Route: 064
     Dates: start: 202301, end: 202309
  2. BUDESONIDE [Suspect]
     Active Substance: BUDESONIDE
     Indication: Colitis ulcerative
     Route: 064
  3. DIMENHYDRINATE [Concomitant]
     Active Substance: DIMENHYDRINATE
     Indication: Nausea
     Route: 064
  4. PERTUSSIS VACCINE [Concomitant]
     Active Substance: PERTUSSIS VACCINE
     Indication: Immunisation
     Route: 064
     Dates: start: 202307, end: 202307

REACTIONS (3)
  - Renal aplasia [Not Recovered/Not Resolved]
  - Imperforate hymen [Not Recovered/Not Resolved]
  - Foetal exposure during pregnancy [Unknown]

NARRATIVE: CASE EVENT DATE: 20230901
